FAERS Safety Report 9069594 (Version 1)
Quarter: 2013Q1

REPORT INFORMATION
  Report Type: Report from Study
  Country: US (occurrence: US)
  Receive Date: 20130131
  Receipt Date: 20130131
  Transmission Date: 20140127
  Serious: No
  Sender: FDA-Public Use
  Company Number: US-ABBOTT-12P-163-0997648-00

PATIENT
  Sex: Female
  Weight: 79 kg

DRUGS (15)
  1. HUMIRA [Suspect]
     Indication: RHEUMATOID ARTHRITIS
     Route: 058
     Dates: start: 20120920
  2. METHOTREXATE [Suspect]
     Indication: RHEUMATOID ARTHRITIS
  3. WELLBUTRIN [Suspect]
     Indication: DEPRESSION
  4. VITAMIN B-12 [Concomitant]
     Indication: HYPOVITAMINOSIS
  5. CALCIUM D [Concomitant]
     Indication: VITAMIN B COMPLEX DEFICIENCY
  6. CYMBALTA [Concomitant]
     Indication: DEPRESSION
  7. FLAX SEED OIL [Concomitant]
     Indication: MEDICAL DIET
  8. FOLIC ACID [Concomitant]
     Indication: FOLATE DEFICIENCY
  9. MULTIVITAMIN [Concomitant]
     Indication: VITAMIN SUPPLEMENTATION
  10. NAPROXIN [Concomitant]
     Indication: RHEUMATOID ARTHRITIS
  11. NEURONTIN [Concomitant]
     Indication: NEUROPATHY PERIPHERAL
  12. OMEGA 3 [Concomitant]
     Indication: MEDICAL DIET
  13. PREDNISONE [Concomitant]
     Indication: RHEUMATOID ARTHRITIS
  14. SULFASALAZINE [Concomitant]
     Indication: RHEUMATOID ARTHRITIS
  15. VIT C, D + E COMPLEX [Concomitant]
     Indication: HYPOVITAMINOSIS

REACTIONS (5)
  - Fatigue [Not Recovered/Not Resolved]
  - Disturbance in attention [Not Recovered/Not Resolved]
  - Influenza like illness [Not Recovered/Not Resolved]
  - Injection site bruising [Recovering/Resolving]
  - Headache [Not Recovered/Not Resolved]
